FAERS Safety Report 19968249 (Version 1)
Quarter: 2021Q4

REPORT INFORMATION
  Report Type: Spontaneous
  Country: US (occurrence: US)
  Receive Date: 20211015
  Receipt Date: 20211015
  Transmission Date: 20220304
  Serious: Yes (Death)
  Sender: FDA-Public Use
  Company Number: None

PATIENT
  Age: 75 Year
  Sex: Male
  Weight: 68 kg

DRUGS (1)
  1. EVEROLIMUS [Suspect]
     Active Substance: EVEROLIMUS
     Indication: Transplant rejection
     Dosage: ?          OTHER DOSE:2 MG(4TABS),2.5;OTHER FREQUENCY:QAM, QHS;
     Route: 048
     Dates: end: 20190920

REACTIONS (1)
  - Polyomavirus viraemia [None]

NARRATIVE: CASE EVENT DATE: 20211011
